FAERS Safety Report 5554661-4 (Version None)
Quarter: 2007Q4

REPORT INFORMATION
  Report Type: 
  Country: None (occurrence: None)
  Receive Date: 20071213
  Receipt Date: 20070801
  Transmission Date: 20080405
  Serious: No
  Sender: FDA-Public Use
  Company Number: US-AMGEN-KDL233315

PATIENT
  Sex: Female
  Weight: 102.4 kg

DRUGS (8)
  1. ENBREL [Suspect]
     Indication: PSORIATIC ARTHROPATHY
     Route: 058
     Dates: start: 20060913, end: 20070321
  2. ENBREL [Suspect]
     Indication: PSORIASIS
  3. GEMFIBROZIL [Concomitant]
     Dates: start: 20061018
  4. ACIPHEX [Concomitant]
  5. HYOSCYAMINE [Concomitant]
  6. CLOBETASOL PROPIONATE [Concomitant]
  7. CLOBETASOL PROPIONATE [Concomitant]
     Route: 061
  8. VIVACTIL [Concomitant]

REACTIONS (4)
  - PSORIASIS [None]
  - PSORIATIC ARTHROPATHY [None]
  - PYREXIA [None]
  - UPPER RESPIRATORY TRACT INFECTION [None]
